FAERS Safety Report 15757720 (Version 1)
Quarter: 2018Q4

REPORT INFORMATION
  Report Type: Spontaneous
  Country: FR (occurrence: FR)
  Receive Date: 20181225
  Receipt Date: 20181225
  Transmission Date: 20190205
  Serious: Yes (Other)
  Sender: FDA-Public Use
  Company Number: FR-TEVA-2018-FR-990492

PATIENT
  Age: 72 Year
  Sex: Male
  Weight: 123 kg

DRUGS (5)
  1. LEVOFLOXACINE ARROW [Suspect]
     Active Substance: LEVOFLOXACIN
     Indication: INFECTION
     Dosage: 1000 MILLIGRAM DAILY;
     Route: 048
     Dates: start: 20181030
  2. LANSOPRAZOLE MYLAN [Suspect]
     Active Substance: LANSOPRAZOLE
     Indication: PROPHYLAXIS AGAINST GASTROINTESTINAL ULCER
     Route: 048
     Dates: start: 20181021
  3. RIMACTAN [Suspect]
     Active Substance: RIFAMPIN
     Indication: INFECTION
     Dosage: 1800 MILLIGRAM DAILY;
     Route: 048
     Dates: start: 20181030, end: 20181120
  4. LOVENOX [Suspect]
     Active Substance: ENOXAPARIN SODIUM
     Indication: THROMBOSIS PROPHYLAXIS
     Dosage: 6000 IU (INTERNATIONAL UNIT) DAILY;
     Route: 058
     Dates: start: 20181023
  5. RIFADINE [Suspect]
     Active Substance: RIFAMPIN
     Indication: INFECTION
     Route: 041
     Dates: end: 20181125

REACTIONS (3)
  - Hepatocellular injury [Recovering/Resolving]
  - Jaundice [Recovering/Resolving]
  - Cholestasis [Recovering/Resolving]

NARRATIVE: CASE EVENT DATE: 20181102
